FAERS Safety Report 18399954 (Version 1)
Quarter: 2020Q4

REPORT INFORMATION
  Report Type: Spontaneous
  Country: US (occurrence: US)
  Receive Date: 20201019
  Receipt Date: 20201019
  Transmission Date: 20210114
  Serious: No
  Sender: FDA-Public Use
  Company Number: US-ALLERGAN-1952322US

PATIENT
  Age: 23 Year
  Sex: Female

DRUGS (4)
  1. VRAYLAR [Suspect]
     Active Substance: CARIPRAZINE
     Indication: MOOD SWINGS
     Dosage: 1.5 MG, QD
     Route: 065
     Dates: start: 20191216, end: 20191216
  2. ZYRTEC [Concomitant]
     Active Substance: CETIRIZINE HYDROCHLORIDE
  3. VRAYLAR [Suspect]
     Active Substance: CARIPRAZINE
     Indication: DEPRESSION
  4. VRAYLAR [Suspect]
     Active Substance: CARIPRAZINE
     Indication: ANXIETY

REACTIONS (9)
  - Sleep disorder [Unknown]
  - Nausea [Unknown]
  - Hypokalaemia [Recovered/Resolved]
  - Hypoaesthesia [Unknown]
  - Vomiting [Unknown]
  - Balance disorder [Unknown]
  - Paraesthesia [Unknown]
  - Abdominal pain [Unknown]
  - Dizziness [Unknown]

NARRATIVE: CASE EVENT DATE: 20191217
